FAERS Safety Report 7285382-8 (Version None)
Quarter: 2011Q1

REPORT INFORMATION
  Report Type: 
  Country: None (occurrence: None)
  Receive Date: 20110121
  Receipt Date: 20101025
  Transmission Date: 20110831
  Serious: No
  Sender: FDA-Public Use
  Company Number: AE 2010-344

PATIENT
  Age: 28 Year
  Sex: Male

DRUGS (1)
  1. FAZACLO ODT [Suspect]
     Dosage: 400 MG DAILY PO
     Route: 048
     Dates: start: 20090501

REACTIONS (1)
  - RESTLESSNESS [None]
